FAERS Safety Report 8695925 (Version 2)
Quarter: 2013Q4

REPORT INFORMATION
  Report Type: Spontaneous
  Country: FR (occurrence: FR)
  Receive Date: 20120801
  Receipt Date: 20131031
  Transmission Date: 20140711
  Serious: Yes (Hospitalization)
  Sender: FDA-Public Use
  Company Number: FR-009507513-1207FRA011369

PATIENT
  Age: 59 Year
  Sex: Female

DRUGS (5)
  1. SINGULAIR [Suspect]
     Dosage: UNK
     Route: 048
     Dates: end: 201205
  2. ORELOX [Concomitant]
     Dosage: UNK
     Dates: start: 20120423, end: 20120427
  3. DAFALGAN [Concomitant]
     Dosage: UNK
     Dates: start: 20120423, end: 20120427
  4. SYMBICORT [Concomitant]
     Dosage: UNK
  5. TELFAST [Concomitant]

REACTIONS (1)
  - Vascular purpura [Recovered/Resolved]
